FAERS Safety Report 25199869 (Version 1)
Quarter: 2025Q2

REPORT INFORMATION
  Report Type: Spontaneous
  Country: FR (occurrence: FR)
  Receive Date: 20250415
  Receipt Date: 20250415
  Transmission Date: 20250716
  Serious: Yes (Other)
  Sender: MYLAN
  Company Number: None

PATIENT
  Age: 23 Year
  Sex: Female

DRUGS (2)
  1. ACETAMINOPHEN [Suspect]
     Active Substance: ACETAMINOPHEN
     Indication: Product used for unknown indication
     Dosage: QD, BETWEEN 4 AND 6 TABLETS/DAY
     Dates: start: 2015
  2. CODEINE [Suspect]
     Active Substance: CODEINE
     Indication: Product used for unknown indication
     Dosage: QD, BETWEEN 4 AND 6 TABLETS/DAY
     Dates: start: 2015

REACTIONS (1)
  - Drug use disorder [Not Recovered/Not Resolved]
